FAERS Safety Report 13646567 (Version 1)
Quarter: 2017Q2

REPORT INFORMATION
  Report Type: Spontaneous
  Country: US (occurrence: US)
  Receive Date: 20170613
  Receipt Date: 20170613
  Transmission Date: 20170830
  Serious: No
  Sender: FDA-Public Use
  Company Number: US-PFIZER INC-2017251810

PATIENT
  Age: 40 Year
  Sex: Female

DRUGS (2)
  1. LETROZOLE. [Suspect]
     Active Substance: LETROZOLE
     Indication: AROMATASE INHIBITION THERAPY
     Dosage: 2.5 MG, DAILY
  2. IBRANCE [Suspect]
     Active Substance: PALBOCICLIB
     Indication: AROMATASE INHIBITION THERAPY
     Dosage: 125 MG, CYCLIC (DAILY 21 DAYS)

REACTIONS (1)
  - Arthralgia [Unknown]
